FAERS Safety Report 5699679-6 (Version None)
Quarter: 2008Q2

REPORT INFORMATION
  Report Type: 
  Country: None (occurrence: None)
  Receive Date: 20080410
  Receipt Date: 20080331
  Transmission Date: 20081010
  Serious: Yes (Hospitalization, Other)
  Sender: FDA-Public Use
  Company Number: PHHO2008US04209

PATIENT
  Age: 73 Year
  Sex: Female
  Weight: 81 kg

DRUGS (5)
  1. IMATINIB MESYLATE [Suspect]
     Indication: MALIGNANT MELANOMA
     Dosage: 600MG DAILY
     Route: 048
     Dates: start: 20080228, end: 20080320
  2. TEMOZOLOMIDE [Suspect]
     Indication: MALIGNANT MELANOMA
     Dosage: 200MG/M2
     Route: 048
     Dates: start: 20080228, end: 20080303
  3. TOPROL-XL [Concomitant]
     Indication: ATRIAL FIBRILLATION
  4. RYTHMOL [Concomitant]
     Indication: ATRIAL FIBRILLATION
  5. LOVENOX [Concomitant]

REACTIONS (3)
  - ANAEMIA [None]
  - ATRIAL FLUTTER [None]
  - DYSPNOEA [None]
